FAERS Safety Report 9569638 (Version 3)
Quarter: 2014Q4

REPORT INFORMATION
  Report Type: Spontaneous
  Country: US (occurrence: US)
  Receive Date: 20130930
  Receipt Date: 20141016
  Transmission Date: 20150529
  Serious: Yes (Hospitalization, Other)
  Sender: FDA-Public Use
  Company Number: US-AMGEN-USASP2013038725

PATIENT
  Age: 58 Year
  Sex: Female

DRUGS (3)
  1. ENBREL [Suspect]
     Active Substance: ETANERCEPT
     Indication: RHEUMATOID ARTHRITIS
     Dosage: 50 MG, QWK
     Route: 058
     Dates: start: 20130301
  2. ENBREL [Suspect]
     Active Substance: ETANERCEPT
     Indication: PSORIATIC ARTHROPATHY
     Dosage: UNK
     Route: 065
  3. ENBREL [Suspect]
     Active Substance: ETANERCEPT
     Route: 065

REACTIONS (17)
  - Injection site hypersensitivity [Unknown]
  - Fall [Recovered/Resolved]
  - Haematoma [Recovered/Resolved]
  - Cellulitis streptococcal [Recovered/Resolved]
  - Injection site bruising [Unknown]
  - Rash [Unknown]
  - Injection site pruritus [Not Recovered/Not Resolved]
  - Urinary tract infection [Unknown]
  - Staphylococcal infection [Recovered/Resolved]
  - Injection site erythema [Not Recovered/Not Resolved]
  - Injection site pain [Not Recovered/Not Resolved]
  - Debridement [Recovered/Resolved]
  - Injection site warmth [Unknown]
  - Injection site swelling [Unknown]
  - Laceration [Recovered/Resolved]
  - Skin graft [Recovered/Resolved]
  - Injection site reaction [Unknown]

NARRATIVE: CASE EVENT DATE: 2013
